FAERS Safety Report 8250961-8 (Version None)
Quarter: 2012Q2

REPORT INFORMATION
  Report Type: 
  Country: None (occurrence: None)
  Receive Date: 20120402
  Receipt Date: 20120323
  Transmission Date: 20120825
  Serious: Yes (Hospitalization)
  Sender: FDA-Public Use
  Company Number: US-BAYER-2011-075607

PATIENT
  Age: 22 Year
  Sex: Female
  Weight: 137.87 kg

DRUGS (4)
  1. YAZ [Suspect]
     Dosage: UNK
     Dates: start: 20070101, end: 20070101
  2. ORTHO TRI-CYCLEN [Concomitant]
     Dosage: UNK
     Dates: start: 20030101, end: 20080101
  3. NEXIUM [Concomitant]
  4. YASMIN [Suspect]
     Dosage: UNK
     Dates: start: 20070101, end: 20070101

REACTIONS (2)
  - GALLBLADDER INJURY [None]
  - CHOLECYSTITIS CHRONIC [None]
